FAERS Safety Report 12531782 (Version 2)
Quarter: 2016Q3

REPORT INFORMATION
  Report Type: Spontaneous
  Country: GB (occurrence: GB)
  Receive Date: 20160706
  Receipt Date: 20160715
  Transmission Date: 20161109
  Serious: Yes (Other)
  Sender: FDA-Public Use
  Company Number: GB-MYLANLABS-2016M1027690

PATIENT

DRUGS (10)
  1. LORATADINE. [Concomitant]
     Active Substance: LORATADINE
     Indication: ECZEMA
  2. PAROXETINE. [Suspect]
     Active Substance: PAROXETINE
     Indication: PRODUCT USED FOR UNKNOWN INDICATION
     Dosage: UNK
     Route: 065
     Dates: start: 199908
  3. PAROXETINE. [Suspect]
     Active Substance: PAROXETINE
     Dosage: UNK
     Route: 065
     Dates: start: 20000426
  4. AMOXICILLIN. [Concomitant]
     Active Substance: AMOXICILLIN
     Indication: URINARY TRACT INFECTION
     Dosage: UNK
  5. DIAZEPAM. [Concomitant]
     Active Substance: DIAZEPAM
     Indication: PRODUCT USED FOR UNKNOWN INDICATION
     Dosage: UNK
     Dates: start: 19970324
  6. THIORIDAZINE [Concomitant]
     Active Substance: THIORIDAZINE
     Indication: PRODUCT USED FOR UNKNOWN INDICATION
     Dosage: 25 MG, UNK
     Route: 065
  7. ZOPICLONE [Concomitant]
     Active Substance: ZOPICLONE
     Indication: PRODUCT USED FOR UNKNOWN INDICATION
     Dosage: 7.5 MG, UNK
     Route: 065
  8. CETIRIZINE [Concomitant]
     Active Substance: CETIRIZINE HYDROCHLORIDE
     Indication: PRODUCT USED FOR UNKNOWN INDICATION
     Dosage: 10 MG, UNK
     Route: 065
  9. DESLORATADINE. [Concomitant]
     Active Substance: DESLORATADINE
     Indication: PRODUCT USED FOR UNKNOWN INDICATION
     Dosage: UNK
     Route: 065
  10. LORATADINE. [Concomitant]
     Active Substance: LORATADINE
     Indication: SEASONAL ALLERGY
     Dosage: UNK
     Route: 065

REACTIONS (31)
  - Suicidal ideation [Unknown]
  - Injury [Unknown]
  - Lethargy [Unknown]
  - Crying [Unknown]
  - Condition aggravated [Unknown]
  - Anxiety [Unknown]
  - Insomnia [Unknown]
  - Diarrhoea [Unknown]
  - Libido decreased [Unknown]
  - Sluggishness [Unknown]
  - Paraesthesia [Unknown]
  - Stress at work [Unknown]
  - Abdominal pain upper [Unknown]
  - Drug withdrawal syndrome [Unknown]
  - Confusional state [Unknown]
  - Hyperhidrosis [Unknown]
  - Nervousness [Unknown]
  - Musculoskeletal discomfort [Unknown]
  - Agitation [Unknown]
  - Malaise [Unknown]
  - Vomiting [Unknown]
  - Erectile dysfunction [Unknown]
  - Poor quality sleep [Unknown]
  - Balance disorder [Unknown]
  - Depressed mood [Unknown]
  - Disturbance in attention [Unknown]
  - Fatigue [Unknown]
  - Tremor [Unknown]
  - Feeling of despair [Unknown]
  - Dyssomnia [Unknown]
  - Ejaculation delayed [Unknown]

NARRATIVE: CASE EVENT DATE: 2000
